FAERS Safety Report 7660324-1 (Version None)
Quarter: 2011Q3

REPORT INFORMATION
  Report Type: 
  Country: None (occurrence: None)
  Receive Date: 20110805
  Receipt Date: 20110728
  Transmission Date: 20111222
  Serious: Yes (Other)
  Sender: FDA-Public Use
  Company Number: US-ELI_LILLY_AND_COMPANY-US201107000791

PATIENT
  Sex: Male
  Weight: 93.17 kg

DRUGS (1)
  1. HUMATROPE [Suspect]
     Indication: HYPOPITUITARISM
     Dosage: 0.2 MG, QD
     Dates: start: 19990101

REACTIONS (3)
  - GINGIVITIS [None]
  - DENTAL CARIES [None]
  - LEUKAEMIA [None]
